FAERS Safety Report 8429195-X (Version None)
Quarter: 2012Q2

REPORT INFORMATION
  Report Type: 
  Country: None (occurrence: None)
  Receive Date: 20120612
  Receipt Date: 20120604
  Transmission Date: 20120825
  Serious: Yes (Hospitalization, Other)
  Sender: FDA-Public Use
  Company Number: PHHY2012FR048837

PATIENT
  Sex: Male

DRUGS (3)
  1. RITALIN [Suspect]
     Route: 048
     Dates: start: 20111001, end: 20120520
  2. PROGLYCEM [Suspect]
     Dosage: 5 MG/KG PER DAY
     Route: 048
     Dates: start: 20120520
  3. PROGLYCEM [Suspect]
     Dosage: 8 MG/KG PER DAY
     Route: 048
     Dates: start: 20100621

REACTIONS (5)
  - PULMONARY ARTERIOPATHY [None]
  - PULMONARY ARTERIAL HYPERTENSION [None]
  - CARDIAC OUTPUT DECREASED [None]
  - HYPOXIA [None]
  - CONDITION AGGRAVATED [None]
